FAERS Safety Report 11910961 (Version 3)
Quarter: 2016Q1

REPORT INFORMATION
  Report Type: Report from Study
  Country: DE (occurrence: DE)
  Receive Date: 20160112
  Receipt Date: 20160205
  Transmission Date: 20160526
  Serious: Yes (Hospitalization, Disabling, Other)
  Sender: FDA-Public Use
  Company Number: DE-SA-2016SA003766

PATIENT
  Age: 75 Year
  Sex: Male
  Weight: 96 kg

DRUGS (5)
  1. ZALTRAP [Suspect]
     Active Substance: ZIV-AFLIBERCEPT
     Indication: COLORECTAL CANCER METASTATIC
     Route: 042
     Dates: start: 20151221, end: 20151221
  2. FOLIC ACID. [Concomitant]
     Active Substance: FOLIC ACID
     Dosage: ROUTE: 3RD LINE
     Dates: start: 20151222, end: 20151222
  3. 5 FU [Concomitant]
     Active Substance: FLUOROURACIL
     Dosage: ROUTE:3RD LINE
     Dates: start: 20151222, end: 20151222
  4. IRINOTECAN [Concomitant]
     Active Substance: IRINOTECAN
     Dosage: ROUTE: 3RD LINE
     Dates: start: 20151222, end: 20151222
  5. ZALTRAP [Suspect]
     Active Substance: ZIV-AFLIBERCEPT
     Indication: COLORECTAL CANCER METASTATIC
     Route: 042
     Dates: start: 20151110, end: 20151110

REACTIONS (3)
  - Pharyngitis [Recovered/Resolved]
  - Odynophagia [Recovering/Resolving]
  - Laryngitis [Recovered/Resolved]

NARRATIVE: CASE EVENT DATE: 20151224
